FAERS Safety Report 20196146 (Version 1)
Quarter: 2021Q4

REPORT INFORMATION
  Report Type: Spontaneous
  Country: US (occurrence: US)
  Receive Date: 20211216
  Receipt Date: 20211216
  Transmission Date: 20220303
  Serious: No
  Sender: FDA-Public Use
  Company Number: US-BAUSCH-BL-2020-002756

PATIENT
  Age: 77 Year
  Sex: Female
  Weight: 70.3 kg

DRUGS (1)
  1. VERTEPORFIN [Suspect]
     Active Substance: VERTEPORFIN
     Indication: Macular degeneration
     Dosage: AS DIRECTED
     Route: 065
     Dates: start: 20200121, end: 20200121

REACTIONS (2)
  - Ill-defined disorder [Not Recovered/Not Resolved]
  - Photopsia [Not Recovered/Not Resolved]

NARRATIVE: CASE EVENT DATE: 20200101
